FAERS Safety Report 8974787 (Version 1)
Quarter: 2012Q4

REPORT INFORMATION
  Report Type: 
  Country: US (occurrence: US)
  Receive Date: 20121220
  Receipt Date: 20121220
  Transmission Date: 20130627
  Serious: Yes (Other)
  Sender: FDA-Public Use
  Company Number: US-ABBOTT-12P-163-1021509-00

PATIENT
  Age: 80 Year
  Sex: Male

DRUGS (12)
  1. VALPROIC ACID [Suspect]
     Indication: SCHIZOPHRENIA
  2. VALPROIC ACID [Interacting]
     Indication: CONVULSION
  3. ISONIAZID [Interacting]
     Indication: TUBERCULIN TEST POSITIVE
  4. OXYCODONE [Concomitant]
     Indication: PRODUCT USED FOR UNKNOWN INDICATION
  5. TAMSULOSIN [Concomitant]
     Indication: PRODUCT USED FOR UNKNOWN INDICATION
  6. FINASTERIDE [Concomitant]
     Indication: PRODUCT USED FOR UNKNOWN INDICATION
  7. OMEPRAZOLE [Concomitant]
     Indication: PRODUCT USED FOR UNKNOWN INDICATION
  8. CYANOCOBALAMIN [Concomitant]
     Indication: PRODUCT USED FOR UNKNOWN INDICATION
  9. PYRIDOX [Concomitant]
     Indication: PRODUCT USED FOR UNKNOWN INDICATION
  10. QUETIAPINE [Concomitant]
     Indication: SCHIZOPHRENIA
  11. QUETIAPINE [Concomitant]
     Indication: CONVULSION
  12. PYRIDOXINE [Concomitant]
     Indication: TUBERCULIN TEST POSITIVE

REACTIONS (2)
  - Toxicity to various agents [Recovered/Resolved]
  - Drug interaction [Recovered/Resolved]
